FAERS Safety Report 15968861 (Version 1)
Quarter: 2019Q1

REPORT INFORMATION
  Report Type: Spontaneous
  Country: US (occurrence: US)
  Receive Date: 20190215
  Receipt Date: 20190215
  Transmission Date: 20190418
  Serious: No
  Sender: FDA-Public Use
  Company Number: US-OTSUKA-2018_007657

PATIENT
  Age: 40 Year
  Sex: Male

DRUGS (6)
  1. BUSULFEX [Suspect]
     Active Substance: BUSULFAN
     Indication: STEM CELL TRANSPLANT
     Dosage: 3.2 MG/KG, QD (X3 ON DAYS- 5 TO- 3)
     Route: 042
  2. CLOFARABINE (CLO) [Concomitant]
     Indication: STEM CELL TRANSPLANT
     Dosage: 30 MG/M2, QD (X 5 ON DAYS-13 TO -9)
     Route: 042
  3. BUSULFEX [Suspect]
     Active Substance: BUSULFAN
     Indication: ACUTE MYELOID LEUKAEMIA
  4. FLUDARABINE (FLU) [Concomitant]
     Indication: STEM CELL TRANSPLANT
     Dosage: 40 MG/M2, QD (X 4 ON DAYS - 5 TO- 2)
     Route: 042
  5. CLOFARABINE (CLO) [Concomitant]
     Indication: ACUTE MYELOID LEUKAEMIA
  6. FLUDARABINE (FLU) [Concomitant]
     Indication: ACUTE MYELOID LEUKAEMIA

REACTIONS (1)
  - Product use in unapproved indication [Unknown]
